FAERS Safety Report 16071120 (Version 8)
Quarter: 2020Q2

REPORT INFORMATION
  Report Type: Spontaneous
  Country: US (occurrence: US)
  Receive Date: 20190314
  Receipt Date: 20200506
  Transmission Date: 20200713
  Serious: No
  Sender: FDA-Public Use
  Company Number: US-PFIZER INC-2019015322

PATIENT
  Age: 62 Year
  Sex: Male

DRUGS (4)
  1. LYRICA CR [Suspect]
     Active Substance: PREGABALIN
     Dosage: 82.5 MG, DAILY
     Route: 048
  2. LYRICA CR [Suspect]
     Active Substance: PREGABALIN
     Indication: POST LAMINECTOMY SYNDROME
     Dosage: 82.5 MG, 1X/DAY (EVERYDAY, QUANTITY: 60 TABLETS)
     Route: 048
  3. LYRICA CR [Suspect]
     Active Substance: PREGABALIN
     Dosage: 82.5 MG, 2X/DAY (TAKE TWO TABLETS TWICE IN THE EVENING )
  4. LYRICA CR [Suspect]
     Active Substance: PREGABALIN
     Dosage: 165 MG, 1X/DAY (IN THE EVENING)
     Route: 048

REACTIONS (3)
  - Product use in unapproved indication [Unknown]
  - Off label use [Unknown]
  - Tinnitus [Unknown]
